FAERS Safety Report 6406068-5 (Version None)
Quarter: 2009Q4

REPORT INFORMATION
  Report Type: 
  Country: None (occurrence: None)
  Receive Date: 20091019
  Receipt Date: 20091010
  Transmission Date: 20100525
  Serious: Yes (Hospitalization, Disabling, Other)
  Sender: FDA-Public Use
  Company Number: US-ELI_LILLY_AND_COMPANY-US200909005855

PATIENT
  Sex: Female

DRUGS (3)
  1. EVISTA [Suspect]
     Indication: OSTEOPENIA
     Dosage: UNK, UNKNOWN
     Route: 065
     Dates: start: 20090515, end: 20090801
  2. VITAMINS [Concomitant]
  3. RESTORIL [Concomitant]

REACTIONS (6)
  - HYPOAESTHESIA [None]
  - MUSCLE DISORDER [None]
  - OFF LABEL USE [None]
  - PAIN IN EXTREMITY [None]
  - PARAESTHESIA [None]
  - TRANSIENT ISCHAEMIC ATTACK [None]
